FAERS Safety Report 18815339 (Version 1)
Quarter: 2021Q1

REPORT INFORMATION
  Report Type: Spontaneous
  Country: US (occurrence: US)
  Receive Date: 20210130
  Receipt Date: 20210130
  Transmission Date: 20210419
  Serious: No
  Sender: FDA-Public Use
  Company Number: None

PATIENT
  Age: 41 Year
  Sex: Female
  Weight: 108 kg

DRUGS (11)
  1. MONTELUKAST [Concomitant]
     Active Substance: MONTELUKAST SODIUM
  2. FISH OIL [Concomitant]
     Active Substance: FISH OIL
  3. BARD PORT [Concomitant]
  4. SYSTANE EYEDROPS [Concomitant]
     Active Substance: POLYETHYLENE GLYCOL 400\PROPYLENE GLYCOL
  5. GENTEAL EYE GEL [Concomitant]
  6. FLUOXETINE [Suspect]
     Active Substance: FLUOXETINE HYDROCHLORIDE
     Indication: DEPRESSED MOOD
     Route: 048
     Dates: start: 20210130
  7. XIIDRA [Concomitant]
     Active Substance: LIFITEGRAST
  8. TYLENOL [Concomitant]
     Active Substance: ACETAMINOPHEN
  9. LEVETIRACETAM. [Concomitant]
     Active Substance: LEVETIRACETAM
  10. VERAPAMIL [Concomitant]
     Active Substance: VERAPAMIL HYDROCHLORIDE
  11. SOLIRIS INFUSION [Concomitant]

REACTIONS (7)
  - Nausea [None]
  - Influenza like illness [None]
  - Vomiting [None]
  - Gastrooesophageal reflux disease [None]
  - Product substitution issue [None]
  - Feeling abnormal [None]
  - Retching [None]

NARRATIVE: CASE EVENT DATE: 20210130
